FAERS Safety Report 14988273 (Version 1)
Quarter: 2018Q2

REPORT INFORMATION
  Report Type: Spontaneous
  Country: CN (occurrence: CN)
  Receive Date: 20180608
  Receipt Date: 20180608
  Transmission Date: 20180711
  Serious: Yes (Other)
  Sender: FDA-Public Use
  Company Number: CN-ROCHE-2134834

PATIENT
  Age: 52 Year
  Sex: Female

DRUGS (8)
  1. XELODA [Suspect]
     Active Substance: CAPECITABINE
     Indication: RECTAL ADENOCARCINOMA
     Dosage: 8 CYCLES
     Route: 065
     Dates: start: 20140121, end: 20140715
  2. AVASTIN [Suspect]
     Active Substance: BEVACIZUMAB
     Route: 042
     Dates: start: 20150330, end: 20160219
  3. XELODA [Suspect]
     Active Substance: CAPECITABINE
     Route: 065
     Dates: start: 20150330, end: 20160219
  4. IRINOTECAN [Suspect]
     Active Substance: IRINOTECAN
     Indication: RECTAL ADENOCARCINOMA
     Dosage: 6 CYCLES
     Route: 065
     Dates: start: 20141121, end: 20150312
  5. OXALIPLATIN. [Suspect]
     Active Substance: OXALIPLATIN
     Indication: RECTAL ADENOCARCINOMA
     Dosage: 8 CYCLES
     Route: 065
     Dates: start: 20140121, end: 20140715
  6. FLUOROURACIL. [Suspect]
     Active Substance: FLUOROURACIL
     Indication: RECTAL ADENOCARCINOMA
     Dosage: 6 CYCLES
     Route: 065
     Dates: start: 20141121, end: 20150312
  7. AVASTIN [Suspect]
     Active Substance: BEVACIZUMAB
     Indication: RECTAL ADENOCARCINOMA
     Dosage: 6 CYCLES
     Route: 042
     Dates: start: 20141121, end: 20150312
  8. FOLINIC ACID [Suspect]
     Active Substance: LEUCOVORIN
     Indication: RECTAL ADENOCARCINOMA
     Dosage: 6 CYCLES
     Route: 065
     Dates: start: 20141121, end: 20150312

REACTIONS (2)
  - Gastrointestinal disorder [Unknown]
  - Bone marrow toxicity [Unknown]
